FAERS Safety Report 4503615-5 (Version None)
Quarter: 2004Q4

REPORT INFORMATION
  Report Type: 
  Country: None (occurrence: None)
  Receive Date: 20041115
  Receipt Date: 20041029
  Transmission Date: 20050328
  Serious: Yes (Death)
  Sender: FDA-Public Use
  Company Number: 9157

PATIENT
  Age: 84 Year
  Sex: Male

DRUGS (6)
  1. AMIODARONE HCL [Suspect]
     Indication: ATRIAL FIBRILLATION
     Dosage: 200 MG PO
     Route: 048
     Dates: start: 20040201, end: 20040727
  2. AMIODARONE HCL [Suspect]
     Indication: VENTRICULAR TACHYCARDIA
     Dosage: 200 MG PO
     Route: 048
     Dates: start: 20040201, end: 20040727
  3. FRUSEMIDE [Concomitant]
  4. WARFARIN [Concomitant]
  5. LEVODOPA BENSERAZIDE HYDROCHLORIDE [Concomitant]
  6. RAMIPRIL [Concomitant]

REACTIONS (3)
  - CARDIAC ARREST [None]
  - HYPOXIA [None]
  - PULMONARY FIBROSIS [None]
